FAERS Safety Report 5782695-3 (Version None)
Quarter: 2008Q2

REPORT INFORMATION
  Report Type: 
  Country: None (occurrence: None)
  Receive Date: 20080619
  Receipt Date: 20080619
  Transmission Date: 20081010
  Serious: Yes (Life-Threatening)
  Sender: FDA-Public Use
  Company Number: None

PATIENT
  Sex: Male
  Weight: 65.7716 kg

DRUGS (9)
  1. TORISEL [Suspect]
     Indication: RENAL CELL CARCINOMA
     Dosage: 25 MG WEEKLY IV
     Route: 042
     Dates: start: 20071109
  2. TORISEL [Suspect]
     Indication: RENAL CELL CARCINOMA
     Dosage: 25 MG WEEKLY IV
     Route: 042
     Dates: start: 20071120
  3. TORISEL [Suspect]
     Indication: RENAL CELL CARCINOMA
     Dosage: 25 MG WEEKLY IV
     Route: 042
     Dates: start: 20071130
  4. TORISEL [Suspect]
     Indication: RENAL CELL CARCINOMA
     Dosage: 25 MG WEEKLY IV
     Route: 042
     Dates: start: 20071210
  5. TORISEL [Suspect]
     Indication: RENAL CELL CARCINOMA
     Dosage: 25 MG WEEKLY IV
     Route: 042
     Dates: start: 20071217
  6. TORISEL [Suspect]
     Indication: RENAL CELL CARCINOMA
     Dosage: 25 MG WEEKLY IV
     Route: 042
     Dates: start: 20071224
  7. TORISEL [Suspect]
     Indication: RENAL CELL CARCINOMA
     Dosage: 25 MG WEEKLY IV
     Route: 042
     Dates: start: 20080110
  8. TORISEL [Suspect]
     Indication: RENAL CELL CARCINOMA
     Dosage: 25 MG WEEKLY IV
     Route: 042
     Dates: start: 20080124
  9. TORISEL [Suspect]
     Indication: RENAL CELL CARCINOMA
     Dosage: 25 MG WEEKLY IV
     Route: 042
     Dates: start: 20080207

REACTIONS (5)
  - BACK PAIN [None]
  - BLOOD PRESSURE DECREASED [None]
  - BLOOD PRESSURE INCREASED [None]
  - CONVULSION [None]
  - DRUG HYPERSENSITIVITY [None]
